FAERS Safety Report 16024916 (Version 1)
Quarter: 2019Q1

REPORT INFORMATION
  Report Type: Spontaneous
  Country: US (occurrence: US)
  Receive Date: 20190301
  Receipt Date: 20190301
  Transmission Date: 20190418
  Serious: No
  Sender: FDA-Public Use
  Company Number: US-009507513-1902USA004325

PATIENT
  Age: 13 Year
  Sex: Male

DRUGS (1)
  1. TEMODAR [Suspect]
     Active Substance: TEMOZOLOMIDE
     Indication: ASTROBLASTOMA
     Dosage: 90 MILLIGRAM/KILOGRAM, QD

REACTIONS (2)
  - Product use in unapproved indication [Unknown]
  - Product use issue [Unknown]
